FAERS Safety Report 8210286-3 (Version None)
Quarter: 2012Q1

REPORT INFORMATION
  Report Type: 
  Country: None (occurrence: None)
  Receive Date: 20120314
  Receipt Date: 20110708
  Transmission Date: 20120608
  Serious: No
  Sender: FDA-Public Use
  Company Number: US-ASTRAZENECA-2011SE41492

PATIENT
  Weight: 70.8 kg

DRUGS (9)
  1. METFORMIN HCL [Concomitant]
  2. TYLENOL [Concomitant]
  3. METOPROLOL SUCCINATE [Suspect]
     Route: 048
  4. NAPROXEN [Concomitant]
  5. TRAMADOL HCL [Concomitant]
     Indication: PAIN
  6. LYRICA [Concomitant]
  7. CYMBALTA [Concomitant]
  8. ASPIRIN [Concomitant]
  9. NITROGLYCERIN [Concomitant]

REACTIONS (6)
  - TYPE 2 DIABETES MELLITUS [None]
  - PAIN IN EXTREMITY [None]
  - BACK PAIN [None]
  - DIABETES MELLITUS INADEQUATE CONTROL [None]
  - FATIGUE [None]
  - MIGRAINE WITHOUT AURA [None]
